FAERS Safety Report 6864248-9 (Version None)
Quarter: 2010Q3

REPORT INFORMATION
  Report Type: 
  Country: None (occurrence: None)
  Receive Date: 20100721
  Receipt Date: 20100716
  Transmission Date: 20110219
  Serious: Yes (Disabling, Other)
  Sender: FDA-Public Use
  Company Number: US-MERCK-0812USA05212

PATIENT
  Age: 64 Year
  Sex: Female
  Weight: 75 kg

DRUGS (7)
  1. FOSAMAX [Suspect]
     Indication: OSTEOPENIA
     Route: 048
     Dates: start: 20071001, end: 20080601
  2. FOSAMAX [Suspect]
     Indication: BREAST CANCER
     Route: 048
     Dates: start: 20071001, end: 20080601
  3. FEMARA [Concomitant]
     Indication: CANCER HORMONAL THERAPY
     Route: 048
     Dates: start: 20030101
  4. ALLEGRA D 24 HOUR [Concomitant]
     Indication: ALLERGIC SINUSITIS
     Route: 065
     Dates: start: 20010101
  5. FOSAMAX PLUS D [Suspect]
     Indication: OSTEOPENIA
     Route: 048
     Dates: start: 20070901
  6. FOSAMAX PLUS D [Suspect]
     Indication: BREAST CANCER
     Route: 048
     Dates: start: 20070901
  7. BONIVA [Suspect]
     Indication: OSTEOPENIA
     Route: 048
     Dates: start: 20070901, end: 20071001

REACTIONS (19)
  - ABSCESS [None]
  - ARTHROPATHY [None]
  - BRUXISM [None]
  - DENTAL CARIES [None]
  - DIARRHOEA [None]
  - HYPERTENSION [None]
  - IMPAIRED HEALING [None]
  - JAW DISORDER [None]
  - JAW FRACTURE [None]
  - ORAL DISORDER [None]
  - ORAL INFECTION [None]
  - OSTEOMYELITIS [None]
  - OSTEONECROSIS OF JAW [None]
  - PULPITIS DENTAL [None]
  - SINUS DISORDER [None]
  - SINUSITIS [None]
  - TOOTH DISORDER [None]
  - TOOTH FRACTURE [None]
  - TOOTH RESORPTION [None]
